FAERS Safety Report 5572975-9 (Version None)
Quarter: 2007Q4

REPORT INFORMATION
  Report Type: 
  Country: None (occurrence: None)
  Receive Date: 20071224
  Receipt Date: 20071206
  Transmission Date: 20080405
  Serious: Yes (Life-Threatening, Hospitalization)
  Sender: FDA-Public Use
  Company Number: FR-BRISTOL-MYERS SQUIBB COMPANY-13991971

PATIENT
  Age: 71 Year
  Sex: Male

DRUGS (8)
  1. GLUCOPHAGE [Suspect]
     Indication: TYPE 2 DIABETES MELLITUS
     Dosage: DOSE FORM=TABLET
     Route: 048
  2. CORGARD [Suspect]
     Route: 048
  3. ADANCOR [Suspect]
     Dosage: DOSE FORM=TABLET
     Route: 048
  4. ALDACTAZIDE [Suspect]
     Dosage: TABLET FORM
     Route: 048
  5. COZAAR [Suspect]
     Dosage: DOSE FORM=TABLET
     Route: 048
  6. AMARYL [Suspect]
     Indication: TYPE 2 DIABETES MELLITUS
     Dosage: DOSE FORM=TABLET
     Route: 048
  7. TAHOR [Suspect]
     Dosage: DOSE FORM=TABLET
     Route: 048
  8. TILCOTIL [Suspect]
     Indication: BACK PAIN
     Route: 048
     Dates: start: 20070717, end: 20070717

REACTIONS (3)
  - HYPERKALAEMIA [None]
  - LACTIC ACIDOSIS [None]
  - RENAL FAILURE ACUTE [None]
